FAERS Safety Report 17940156 (Version 1)
Quarter: 2020Q2

REPORT INFORMATION
  Report Type: Report from Study
  Country: US (occurrence: US)
  Receive Date: 20200624
  Receipt Date: 20200624
  Transmission Date: 20200714
  Serious: Yes (Hospitalization)
  Sender: FDA-Public Use
  Company Number: US-JNJFOC-20200623428

PATIENT
  Age: 25 Year
  Sex: Female
  Weight: 49.9 kg

DRUGS (10)
  1. PREDNISONE. [Concomitant]
     Active Substance: PREDNISONE
     Indication: PRODUCT USED FOR UNKNOWN INDICATION
  2. ONDANSETRON [Concomitant]
     Active Substance: ONDANSETRON
     Indication: PRODUCT USED FOR UNKNOWN INDICATION
  3. VITAMIN D3 [Concomitant]
     Active Substance: CHOLECALCIFEROL
     Indication: PRODUCT USED FOR UNKNOWN INDICATION
  4. CHOLECALCIFEROL [Concomitant]
     Active Substance: CHOLECALCIFEROL
     Indication: PRODUCT USED FOR UNKNOWN INDICATION
  5. CRYSELLE [Concomitant]
     Active Substance: ETHINYL ESTRADIOL\NORGESTREL
     Indication: CONTRACEPTION
  6. CLORAZEPATE [Concomitant]
     Active Substance: CLORAZEPATE DIPOTASSIUM
     Indication: PRODUCT USED FOR UNKNOWN INDICATION
  7. STELARA [Concomitant]
     Active Substance: USTEKINUMAB
     Dates: start: 20200303
  8. INFLIXIMAB, RECOMBINANT [Suspect]
     Active Substance: INFLIXIMAB
     Indication: CROHN^S DISEASE
     Route: 042
     Dates: start: 20050531, end: 20070618
  9. STELARA [Concomitant]
     Active Substance: USTEKINUMAB
     Indication: PRODUCT USED FOR UNKNOWN INDICATION
     Dates: start: 20171218
  10. NASCOBAL [Concomitant]
     Active Substance: CYANOCOBALAMIN
     Indication: PRODUCT USED FOR UNKNOWN INDICATION

REACTIONS (1)
  - Crohn^s disease [Recovered/Resolved]

NARRATIVE: CASE EVENT DATE: 20200610
